FAERS Safety Report 7599183-4 (Version None)
Quarter: 2011Q3

REPORT INFORMATION
  Report Type: 
  Country: None (occurrence: None)
  Receive Date: 20110711
  Receipt Date: 20110622
  Transmission Date: 20111222
  Serious: Yes (Hospitalization)
  Sender: FDA-Public Use
  Company Number: US-BAYER-2011-056840

PATIENT
  Age: 32 Year
  Sex: Male
  Weight: 23 kg

DRUGS (13)
  1. DULOXETIME HYDROCHLORIDE [Concomitant]
  2. COPAXONE [Concomitant]
  3. DOCUSATE [Concomitant]
  4. GABAPENTIN [Concomitant]
     Dosage: UNK
     Dates: start: 20110501, end: 20110503
  5. FINGOLIMOD [Concomitant]
     Indication: VISION BLURRED
     Route: 048
  6. PREGABALIN [Concomitant]
  7. ISOSORBIDE MONONITRATE [Concomitant]
  8. CYMBALTA [Concomitant]
  9. ITRACONAZOLE [Concomitant]
  10. BACLOFEN [Concomitant]
  11. FINGOLIMOD [Concomitant]
     Indication: PYREXIA
  12. CLONAZEPAM [Concomitant]
  13. INTERFERON BETA-1B [Suspect]
     Route: 058

REACTIONS (1)
  - TYPE 2 DIABETES MELLITUS [None]
